FAERS Safety Report 8415358-6 (Version None)
Quarter: 2012Q2

REPORT INFORMATION
  Report Type: 
  Country: None (occurrence: None)
  Receive Date: 20120530
  Receipt Date: 20120518
  Transmission Date: 20120825
  Serious: Yes (Hospitalization)
  Sender: FDA-Public Use
  Company Number: AUR-APL-2012-02214

PATIENT
  Age: 44 Year
  Sex: Female

DRUGS (12)
  1. SIMVASTATIN [Suspect]
     Indication: PRODUCT USED FOR UNKNOWN INDICATION
     Dosage: 20 MG, 1 D, ORAL
     Route: 048
  2. WARFARIN SODIUM [Suspect]
     Indication: PRODUCT USED FOR UNKNOWN INDICATION
     Dosage: 1 D
  3. MULTIVITAMIN [Concomitant]
  4. OXYCODONE HCL [Concomitant]
  5. METOPROLOL TARTRATE [Concomitant]
  6. LIDOCAINE EXTERNAL PATCH (LIDOCAINE) [Concomitant]
  7. CYMBALTA [Suspect]
     Indication: DEPRESSION
     Dosage: 60 MG (60 MG, 1 IN 1 D)
  8. ACETAMINOPHEN [Suspect]
     Indication: NEURALGIA
     Dosage: 2600 MG (650 MG, AS REQUIRED), ORAL
     Route: 048
  9. AMLODIPINE [Concomitant]
  10. INSULIN LISPRO (INSULIN LISPRO) [Concomitant]
  11. LANTUS [Concomitant]
  12. GABAPENTIN [Concomitant]

REACTIONS (7)
  - INTERNATIONAL NORMALISED RATIO INCREASED [None]
  - INTERNATIONAL NORMALISED RATIO DECREASED [None]
  - ALANINE AMINOTRANSFERASE INCREASED [None]
  - DRUG INTERACTION [None]
  - HEPATITIS [None]
  - HEPATIC FUNCTION ABNORMAL [None]
  - ASPARTATE AMINOTRANSFERASE INCREASED [None]
